FAERS Safety Report 7750425 (Version 3)
Quarter: 2014Q1

REPORT INFORMATION
  Report Type: Report from Study
  Country: US (occurrence: US)
  Receive Date: 20110106
  Receipt Date: 20140219
  Transmission Date: 20141002
  Serious: Yes (Hospitalization, Other)
  Sender: FDA-Public Use
  Company Number: US-ALEXION-A201001675

PATIENT
  Sex: 0

DRUGS (13)
  1. SOLIRIS [Suspect]
     Indication: PAROXYSMAL NOCTURNAL HAEMOGLOBINURIA
     Dosage: UNK
     Route: 042
  2. FOLIC ACID [Concomitant]
  3. FLOMAX                             /00889901/ [Concomitant]
  4. DOXASIN [Concomitant]
  5. AMBIEN [Concomitant]
  6. CITALOPRAM [Concomitant]
  7. VICODIN [Concomitant]
  8. IRON [Concomitant]
  9. EXJADE [Concomitant]
  10. ASPIRIN [Concomitant]
  11. PREDNISONE [Concomitant]
  12. PRILOSEC                           /00661201/ [Concomitant]
  13. PHOSLO [Concomitant]

REACTIONS (6)
  - Renal impairment [Recovered/Resolved]
  - Pneumonia [Recovered/Resolved]
  - Sepsis [Recovered/Resolved]
  - Dialysis [Unknown]
  - Blood pressure decreased [Recovered/Resolved]
  - Aspiration pleural cavity [Unknown]
